FAERS Safety Report 18433172 (Version 63)
Quarter: 2025Q1

REPORT INFORMATION
  Report Type: Report from Study
  Country: CO (occurrence: CO)
  Receive Date: 20201028
  Receipt Date: 20250321
  Transmission Date: 20250409
  Serious: Yes (Hospitalization)
  Sender: TAKEDA
  Company Number: CO-TAKEDA-CO202016778

PATIENT
  Age: 41 Year
  Sex: Female
  Weight: 60 kg

DRUGS (13)
  1. ICATIBANT [Suspect]
     Active Substance: ICATIBANT ACETATE
     Indication: Hereditary angioedema
     Dates: start: 20190115, end: 20230807
  2. ICATIBANT [Suspect]
     Active Substance: ICATIBANT ACETATE
  3. ICATIBANT [Suspect]
     Active Substance: ICATIBANT ACETATE
     Dosage: UNK UNK, Q6HR
     Dates: start: 20200101
  4. ICATIBANT [Suspect]
     Active Substance: ICATIBANT ACETATE
     Dosage: UNK UNK, Q6HR
     Dates: start: 20200809, end: 20200809
  5. ICATIBANT [Suspect]
     Active Substance: ICATIBANT ACETATE
     Dosage: UNK UNK, Q6HR
     Dates: start: 20201011
  6. ICATIBANT [Suspect]
     Active Substance: ICATIBANT ACETATE
  7. ICATIBANT [Suspect]
     Active Substance: ICATIBANT ACETATE
  8. ICATIBANT [Suspect]
     Active Substance: ICATIBANT ACETATE
  9. ICATIBANT [Suspect]
     Active Substance: ICATIBANT ACETATE
  10. TAKHZYRO [Suspect]
     Active Substance: LANADELUMAB-FLYO
     Indication: Hereditary angioedema
     Dosage: 300 MILLIGRAM, Q2WEEKS
     Dates: start: 20220613
  11. TAKHZYRO [Suspect]
     Active Substance: LANADELUMAB-FLYO
     Dosage: 300 MILLIGRAM, Q2WEEKS
  12. TAKHZYRO [Suspect]
     Active Substance: LANADELUMAB-FLYO
     Dosage: 300 MILLIGRAM, MONTHLY
  13. TAKHZYRO [Suspect]
     Active Substance: LANADELUMAB-FLYO
     Dosage: 300 MILLIGRAM, MONTHLY
     Dates: end: 20230816

REACTIONS (17)
  - Muscular weakness [Recovering/Resolving]
  - Anosmia [Not Recovered/Not Resolved]
  - Ageusia [Not Recovered/Not Resolved]
  - Headache [Recovering/Resolving]
  - Gait disturbance [Recovering/Resolving]
  - Body height abnormal [Unknown]
  - Weight fluctuation [Unknown]
  - Crying [Not Recovered/Not Resolved]
  - Anxiety [Not Recovered/Not Resolved]
  - Inappropriate schedule of product administration [Unknown]
  - Hyperhidrosis [Recovered/Resolved]
  - Hereditary angioedema [Recovered/Resolved]
  - Salivary hypersecretion [Recovered/Resolved]
  - Arthropod sting [Recovering/Resolving]
  - Cholelithiasis [Unknown]
  - Device use issue [Unknown]
  - Product use issue [Unknown]

NARRATIVE: CASE EVENT DATE: 20200715
